FAERS Safety Report 15521457 (Version 1)
Quarter: 2018Q4

REPORT INFORMATION
  Report Type: Spontaneous
  Country: PR (occurrence: PR)
  Receive Date: 20181012
  Receipt Date: 20181012
  Transmission Date: 20190205
  Serious: Yes (Other)
  Sender: FDA-Public Use
  Company Number: None

PATIENT
  Age: 30 Year
  Sex: Female
  Weight: 81 kg

DRUGS (5)
  1. THERMACARE ULTRA [Suspect]
     Active Substance: CAMPHOR (SYNTHETIC)\CAPSICUM OLEORESIN\MENTHOL\METHYL SALICYLATE
     Indication: PAIN
     Dosage: ?          QUANTITY:113.4 1 APPLICATION;?
     Route: 061
     Dates: start: 20180910, end: 20180915
  2. THERMACARE ULTRA [Suspect]
     Active Substance: CAMPHOR (SYNTHETIC)\CAPSICUM OLEORESIN\MENTHOL\METHYL SALICYLATE
     Indication: LIGAMENT SPRAIN
     Dosage: ?          QUANTITY:113.4 1 APPLICATION;?
     Route: 061
     Dates: start: 20180910, end: 20180915
  3. ARNICARE BOIRON NATURAL [Concomitant]
  4. CATAFLAM [Concomitant]
     Active Substance: DICLOFENAC POTASSIUM
  5. NORFLEX [Concomitant]
     Active Substance: ORPHENADRINE CITRATE

REACTIONS (4)
  - Product use issue [None]
  - Thermal burn [None]
  - Product label issue [None]
  - Product complaint [None]

NARRATIVE: CASE EVENT DATE: 20180915
